FAERS Safety Report 12760954 (Version 1)
Quarter: 2016Q3

REPORT INFORMATION
  Report Type: Spontaneous
  Country: US (occurrence: US)
  Receive Date: 20160919
  Receipt Date: 20160919
  Transmission Date: 20161109
  Serious: No
  Sender: FDA-Public Use
  Company Number: US-ASTRAZENECA-2016SE93700

PATIENT
  Age: 70 Year
  Sex: Male
  Weight: 83.9 kg

DRUGS (13)
  1. LISINOPRIL. [Suspect]
     Active Substance: LISINOPRIL
     Indication: DYSPNOEA
     Route: 048
     Dates: start: 20160802, end: 20160816
  2. CRESTOR [Suspect]
     Active Substance: ROSUVASTATIN CALCIUM
     Indication: CORONARY ARTERY DISEASE
     Route: 048
     Dates: start: 20160718, end: 20160816
  3. MELOXICAM. [Concomitant]
     Active Substance: MELOXICAM
     Indication: ARTHRALGIA
     Dates: start: 2009, end: 2016
  4. LISINOPRIL. [Suspect]
     Active Substance: LISINOPRIL
     Indication: DYSPNOEA
     Route: 048
     Dates: start: 20160725, end: 20160801
  5. METOPROLOL SUCCINATE. [Concomitant]
     Active Substance: METOPROLOL SUCCINATE
     Indication: CARDIAC STRESS TEST
     Dosage: 25.0MG UNKNOWN
     Route: 065
     Dates: start: 2016
  6. BABY ASPIRIN [Concomitant]
     Active Substance: ASPIRIN
     Dosage: DAILY
     Dates: start: 2016
  7. PRILOSEC OTC [Suspect]
     Active Substance: OMEPRAZOLE MAGNESIUM
     Route: 048
     Dates: start: 2009, end: 2016
  8. BRILINTA [Suspect]
     Active Substance: TICAGRELOR
     Indication: CORONARY ARTERIAL STENT INSERTION
     Route: 048
     Dates: start: 20160712, end: 20160725
  9. LISINOPRIL. [Suspect]
     Active Substance: LISINOPRIL
     Indication: HYPERTENSION
     Route: 048
     Dates: start: 20160725, end: 20160801
  10. LISINOPRIL. [Suspect]
     Active Substance: LISINOPRIL
     Indication: HYPERTENSION
     Route: 048
     Dates: start: 20160802, end: 20160816
  11. ATORVASTATIN [Concomitant]
     Active Substance: ATORVASTATIN
     Indication: CORONARY ARTERY DISEASE
     Dates: start: 20160717, end: 20160718
  12. PLAVIX [Concomitant]
     Active Substance: CLOPIDOGREL BISULFATE
     Indication: ANTIPLATELET THERAPY
     Dates: start: 20160725
  13. ATIVAN [Concomitant]
     Active Substance: LORAZEPAM
     Indication: DYSPNOEA
     Dosage: 0.5MG AS NEEDED

REACTIONS (4)
  - Bone disorder [Unknown]
  - Arthralgia [Unknown]
  - Haemochromatosis [Unknown]
  - Dyspnoea [Not Recovered/Not Resolved]

NARRATIVE: CASE EVENT DATE: 2009
